FAERS Safety Report 5757549-9 (Version None)
Quarter: 2008Q2

REPORT INFORMATION
  Report Type: 
  Country: None (occurrence: None)
  Receive Date: 20080603
  Receipt Date: 20080522
  Transmission Date: 20081010
  Serious: No
  Sender: FDA-Public Use
  Company Number: GB-PFIZER INC-2008042316

PATIENT
  Age: 46 Year

DRUGS (5)
  1. GABAPENTIN [Suspect]
     Indication: EPILEPSY
  2. CARBAMAZEPINE [Suspect]
     Indication: EPILEPSY
     Route: 048
  3. LAMOTRIGINE [Suspect]
     Indication: EPILEPSY
     Route: 048
  4. TOPIRAMATE [Suspect]
     Indication: EPILEPSY
  5. ACETAMINOPHEN [Concomitant]

REACTIONS (1)
  - NO ADVERSE EVENT [None]
